FAERS Safety Report 15862993 (Version 1)
Quarter: 2018Q4

REPORT INFORMATION
  Report Type: Spontaneous
  Country: US (occurrence: US)
  Receive Date: 20181231
  Receipt Date: 20181231
  Transmission Date: 20190205
  Serious: Yes (Death, Hospitalization)
  Sender: FDA-Public Use
  Company Number: None

PATIENT
  Age: 59 Year
  Sex: Female
  Weight: 50.9 kg

DRUGS (14)
  1. AURANOFIN [Suspect]
     Active Substance: AURANOFIN
     Indication: OVARIAN CANCER
     Route: 048
     Dates: start: 20181120, end: 20181217
  2. PROTONIX [Concomitant]
     Active Substance: PANTOPRAZOLE SODIUM
  3. COMPAZINE [Concomitant]
     Active Substance: PROCHLORPERAZINE MALEATE
  4. GABAPENTIN. [Concomitant]
     Active Substance: GABAPENTIN
  5. ROBAXIN [Concomitant]
     Active Substance: METHOCARBAMOL
  6. ACETAMINOPHEN. [Concomitant]
     Active Substance: ACETAMINOPHEN
  7. SIROLIMUS. [Suspect]
     Active Substance: SIROLIMUS
     Indication: OVARIAN CANCER
     Route: 048
     Dates: start: 20181120, end: 20181217
  8. MIRALAX [Concomitant]
     Active Substance: POLYETHYLENE GLYCOL 3350
  9. HYDROCODONE-ACETAMINOPHEN [Concomitant]
     Active Substance: ACETAMINOPHEN\HYDROCODONE
  10. ADVIL [Concomitant]
     Active Substance: IBUPROFEN
  11. DILAUDID [Concomitant]
     Active Substance: HYDROMORPHONE HYDROCHLORIDE
  12. VOLTAREN [Concomitant]
     Active Substance: DICLOFENAC SODIUM
  13. SENNA [Suspect]
     Active Substance: SENNA LEAF\SENNOSIDES\SENNOSIDES A AND B
  14. FENTANYL. [Concomitant]
     Active Substance: FENTANYL

REACTIONS (9)
  - Pneumonia [None]
  - Cough [None]
  - Respiratory disorder [None]
  - Pulmonary congestion [None]
  - Mediastinal disorder [None]
  - Disease progression [None]
  - Fatigue [None]
  - Lung infiltration [None]
  - Sepsis [None]

NARRATIVE: CASE EVENT DATE: 20181218
